FAERS Safety Report 8438310-3 (Version None)
Quarter: 2012Q2

REPORT INFORMATION
  Report Type: 
  Country: None (occurrence: None)
  Receive Date: 20120614
  Receipt Date: 20120606
  Transmission Date: 20120825
  Serious: Yes (Other)
  Sender: FDA-Public Use
  Company Number: US-CELGENEUS-163-21660-12061174

PATIENT

DRUGS (1)
  1. ABRAXANE [Suspect]
     Route: 041

REACTIONS (12)
  - ANAEMIA [None]
  - LEUKOPENIA [None]
  - RASH [None]
  - TRANSAMINASES [None]
  - HYPONATRAEMIA [None]
  - DIARRHOEA [None]
  - LYMPHOPENIA [None]
  - INFECTION [None]
  - NEUROPATHY PERIPHERAL [None]
  - TINNITUS [None]
  - NEUTROPENIA [None]
  - THROMBOCYTOPENIA [None]
